FAERS Safety Report 20175396 (Version 10)
Quarter: 2025Q2

REPORT INFORMATION
  Report Type: Report from Study
  Country: US (occurrence: US)
  Receive Date: 20211213
  Receipt Date: 20250404
  Transmission Date: 20250717
  Serious: Yes (Other)
  Sender: TAKEDA
  Company Number: US-TAKEDA-US202022810

PATIENT
  Age: 66 Year
  Sex: Female
  Weight: 90.703 kg

DRUGS (17)
  1. LANADELUMAB [Suspect]
     Active Substance: LANADELUMAB
     Indication: Immune system disorder
     Dosage: 300 MILLIGRAM, Q2WEEKS
     Dates: start: 201810
  2. LANADELUMAB [Suspect]
     Active Substance: LANADELUMAB
     Indication: Hereditary angioedema
     Dosage: 300 MILLIGRAM, Q2WEEKS
     Dates: start: 20181101
  3. LANADELUMAB [Suspect]
     Active Substance: LANADELUMAB
     Dosage: 300 MILLIGRAM, Q2WEEKS
     Dates: start: 20181109
  4. LANADELUMAB [Suspect]
     Active Substance: LANADELUMAB
     Dosage: 300 MILLIGRAM, Q2WEEKS
  5. COVID-19 VACCINE NOS [Suspect]
     Active Substance: COVID-19 VACCINE
     Indication: Product used for unknown indication
  6. FIRAZYR [Concomitant]
     Active Substance: ICATIBANT ACETATE
     Indication: Product used for unknown indication
     Dosage: 30 MILLIGRAM, Q6HR
     Dates: start: 20210301
  7. PRAVASTATIN SODIUM [Concomitant]
     Active Substance: PRAVASTATIN SODIUM
  8. PROAIR HFA [Concomitant]
     Active Substance: ALBUTEROL SULFATE
     Indication: Product used for unknown indication
  9. ZOLOFT [Concomitant]
     Active Substance: SERTRALINE HYDROCHLORIDE
     Indication: Depression
     Dosage: 25 MILLIGRAM, QD
     Dates: start: 20201005
  10. CALCIUM [Concomitant]
     Active Substance: CALCIUM
  11. FLONASE [Concomitant]
     Active Substance: FLUTICASONE PROPIONATE
  12. ROSUVASTATIN CALCIUM [Concomitant]
     Active Substance: ROSUVASTATIN CALCIUM
     Indication: Blood cholesterol
     Dosage: 10 MILLIGRAM, QD
     Dates: start: 20210323
  13. VITAMIN D [Concomitant]
     Active Substance: VITAMIN D NOS
  14. ALLEGRA [Concomitant]
     Active Substance: FEXOFENADINE HYDROCHLORIDE
     Indication: Rhinitis allergic
     Dosage: 180 MILLIGRAM, QD
  15. EPINEPHRINE [Concomitant]
     Active Substance: EPINEPHRINE
  16. LOSARTAN POTASSIUM [Concomitant]
     Active Substance: LOSARTAN POTASSIUM
  17. SAJAZIR [Concomitant]
     Active Substance: ICATIBANT ACETATE

REACTIONS (9)
  - Nephrolithiasis [Recovered/Resolved with Sequelae]
  - COVID-19 [Recovering/Resolving]
  - Liver tenderness [Recovering/Resolving]
  - Ligament sprain [Recovering/Resolving]
  - Blood pressure decreased [Recovering/Resolving]
  - Heart rate increased [Recovering/Resolving]
  - Oxygen saturation abnormal [Recovered/Resolved]
  - Hereditary angioedema [Recovering/Resolving]
  - Myalgia [Recovering/Resolving]

NARRATIVE: CASE EVENT DATE: 20241231
